FAERS Safety Report 10809672 (Version 1)
Quarter: 2015Q1

REPORT INFORMATION
  Report Type: Spontaneous
  Country: US (occurrence: None)
  Receive Date: 20150212
  Receipt Date: 20150212
  Transmission Date: 20150721
  Serious: Yes (Other)
  Sender: FDA-Public Use
  Company Number: None

PATIENT
  Age: 14 Year
  Sex: Female
  Weight: 52.16 kg

DRUGS (2)
  1. E.L.F. BLACK HAIR DYE [Suspect]
     Active Substance: COSMETICS
     Indication: HAIR COLOUR CHANGES
     Dates: start: 20130712, end: 20130712
  2. E.L.F. BLACK EYELINER [Suspect]
     Active Substance: COSMETICS
     Indication: PRODUCT USED FOR UNKNOWN INDICATION
     Dates: start: 20130712, end: 20130712

REACTIONS (1)
  - Hypersensitivity [None]

NARRATIVE: CASE EVENT DATE: 20130712
